FAERS Safety Report 25804167 (Version 2)
Quarter: 2025Q4

REPORT INFORMATION
  Report Type: Spontaneous
  Country: SA (occurrence: SA)
  Receive Date: 20250915
  Receipt Date: 20251009
  Transmission Date: 20260117
  Serious: Yes (Other)
  Sender: INCYTE
  Company Number: SA-INCYTE CORPORATION-2025IN004432

PATIENT

DRUGS (4)
  1. PEMAZYRE [Suspect]
     Active Substance: PEMIGATINIB
     Indication: Cholangiocarcinoma
     Dosage: 13.5 MILLIGRAM, QD (2 WEEKS ON / 1  WEEK OFF)
  2. PEMAZYRE [Suspect]
     Active Substance: PEMIGATINIB
     Dosage: 9 MILLIGRAM, QD
  3. PEMAZYRE [Suspect]
     Active Substance: PEMIGATINIB
     Dosage: 9 MILLIGRAM (ALTERNATE-DAY DOSING (ONE DAY ON / ONE DAY OFF))
     Route: 065
  4. PEMAZYRE [Suspect]
     Active Substance: PEMIGATINIB
     Dosage: 4.5 MILLIGRAM, QD

REACTIONS (5)
  - Skin ulcer [Recovering/Resolving]
  - Nail toxicity [Recovering/Resolving]
  - Dry eye [Recovered/Resolved]
  - Hyperphosphataemia [Recovered/Resolved]
  - Palmar-plantar erythrodysaesthesia syndrome [Recovered/Resolved]
